FAERS Safety Report 7622035-8 (Version None)
Quarter: 2011Q3

REPORT INFORMATION
  Report Type: 
  Country: None (occurrence: None)
  Receive Date: 20110720
  Receipt Date: 20101220
  Transmission Date: 20111222
  Serious: Yes (Hospitalization)
  Sender: FDA-Public Use
  Company Number: US-BAYER-201028658NA

PATIENT
  Age: 20 Year
  Sex: Female
  Weight: 94.545 kg

DRUGS (4)
  1. AZITHROMYCIN [Concomitant]
     Dates: start: 20090601, end: 20090701
  2. YAZ [Suspect]
     Indication: ACNE
  3. NEXIUM [Concomitant]
     Indication: GASTROOESOPHAGEAL REFLUX DISEASE
     Dates: start: 20090630
  4. YAZ [Suspect]
     Indication: CONTRACEPTION
     Route: 048
     Dates: start: 20081002, end: 20091101

REACTIONS (5)
  - BILIARY COLIC [None]
  - NAUSEA [None]
  - ABDOMINAL PAIN [None]
  - CHOLECYSTITIS CHRONIC [None]
  - CHOLELITHIASIS [None]
